FAERS Safety Report 17487995 (Version 1)
Quarter: 2020Q1

REPORT INFORMATION
  Report Type: Spontaneous
  Country: US (occurrence: US)
  Receive Date: 20200303
  Receipt Date: 20200303
  Transmission Date: 20200409
  Serious: Yes (Life-Threatening, Other)
  Sender: FDA-Public Use
  Company Number: US-VIFOR (INTERNATIONAL) INC.-VIT-2020-04076

PATIENT
  Age: 18 Year
  Sex: Male
  Weight: 57.8 kg

DRUGS (1)
  1. MIRCERA [Suspect]
     Active Substance: METHOXY POLYETHYLENE GLYCOL-EPOETIN BETA
     Indication: NEPHROGENIC ANAEMIA
     Dosage: INTRAVENOUS PUSH
     Route: 040
     Dates: start: 20200224, end: 20200224

REACTIONS (7)
  - Drug hypersensitivity [Unknown]
  - Throat tightness [Unknown]
  - Pruritus [Unknown]
  - Cough [Unknown]
  - Discomfort [Unknown]
  - Chest discomfort [Unknown]
  - Feeling hot [Unknown]

NARRATIVE: CASE EVENT DATE: 20200224
